FAERS Safety Report 9610969 (Version 6)
Quarter: 2014Q2

REPORT INFORMATION
  Report Type: Spontaneous
  Country: US (occurrence: DE)
  Receive Date: 20131009
  Receipt Date: 20140516
  Transmission Date: 20141212
  Serious: Yes (Life-Threatening, Hospitalization)
  Sender: FDA-Public Use
  Company Number: DE-FRI-1000049850

PATIENT
  Age: 79 Year
  Sex: Male
  Weight: 85 kg

DRUGS (8)
  1. ROFLUMILAST [Suspect]
     Indication: CHRONIC OBSTRUCTIVE PULMONARY DISEASE
     Dosage: 500 MCG
     Route: 048
     Dates: start: 20130827, end: 20140424
  2. BISOPROLOL [Concomitant]
  3. ENALAPRIL [Concomitant]
  4. PENTALONG [Concomitant]
  5. FORMOTOP [Concomitant]
     Indication: CHRONIC OBSTRUCTIVE PULMONARY DISEASE
     Dates: start: 2012
  6. SPIRIVA [Concomitant]
     Indication: CHRONIC OBSTRUCTIVE PULMONARY DISEASE
     Dates: start: 2012
  7. PREDNI 5 [Concomitant]
     Indication: CHRONIC OBSTRUCTIVE PULMONARY DISEASE
     Dates: start: 2012
  8. OXYGEN [Concomitant]

REACTIONS (6)
  - Pulmonary oedema [Unknown]
  - Dyspnoea [Not Recovered/Not Resolved]
  - Viral infection [Unknown]
  - Chest pain [Unknown]
  - Diabetes mellitus [Unknown]
  - Angina pectoris [Unknown]
